FAERS Safety Report 5668365-0 (Version None)
Quarter: 2008Q1

REPORT INFORMATION
  Report Type: 
  Country: None (occurrence: None)
  Receive Date: 20080315
  Receipt Date: 20080225
  Transmission Date: 20080703
  Serious: No
  Sender: FDA-Public Use
  Company Number: US-ABBOTT-08P-163-0439743-00

PATIENT
  Sex: Female
  Weight: 49.94 kg

DRUGS (3)
  1. HUMIRA [Suspect]
     Indication: CROHN'S DISEASE
     Route: 048
     Dates: start: 20071217, end: 20080211
  2. HUMIRA [Suspect]
  3. ANTIBIOTICS [Concomitant]
     Indication: PREMEDICATION
     Route: 048

REACTIONS (2)
  - ALVEOLAR OSTEITIS [None]
  - TOOTH IMPACTED [None]
